FAERS Safety Report 11925284 (Version 1)
Quarter: 2016Q1

REPORT INFORMATION
  Report Type: Spontaneous
  Country: TW (occurrence: TW)
  Receive Date: 20160118
  Receipt Date: 20160118
  Transmission Date: 20160526
  Serious: Yes (Death)
  Sender: FDA-Public Use
  Company Number: TW-CORDEN PHARMA LATINA S.P.A.-TW-2016COR000001

PATIENT
  Sex: Female

DRUGS (5)
  1. CYCLOPHOSPHAMIDE. [Suspect]
     Active Substance: CYCLOPHOSPHAMIDE
     Indication: LEIOMYOSARCOMA RECURRENT
     Dosage: 50 MG, QOD
     Route: 048
  2. HYDROXYCHLOROQUINE [Suspect]
     Active Substance: HYDROXYCHLOROQUINE
     Indication: LEIOMYOSARCOMA RECURRENT
     Dosage: 400 MG, QD
  3. RAPAMYCIN [Suspect]
     Active Substance: SIROLIMUS
     Indication: LEIOMYOSARCOMA RECURRENT
     Dosage: 2 MG, QD
  4. GEMCITABINE [Suspect]
     Active Substance: GEMCITABINE\GEMCITABINE HYDROCHLORIDE
     Indication: LEIOMYOSARCOMA RECURRENT
     Dosage: 1400 MG PER BODY, Q2W
     Route: 042
  5. ETOPOSIDE. [Suspect]
     Active Substance: ETOPOSIDE
     Indication: LEIOMYOSARCOMA RECURRENT
     Dosage: 50 MG, QOD
     Route: 048

REACTIONS (1)
  - Hepatitis B [Fatal]
